FAERS Safety Report 7260494 (Version 6)
Quarter: 2012Q4

REPORT INFORMATION
  Report Type: 
  Country: US (occurrence: US)
  Receive Date: 20100129
  Receipt Date: 20121228
  Transmission Date: 20130627
  Serious: Yes (Hospitalization, Other)
  Sender: FDA-Public Use
  Company Number: US-ROCHE-676221

PATIENT
  Sex: Female
  Weight: 83.9 kg

DRUGS (9)
  1. PEGASYS [Suspect]
     Indication: HEPATITIS C
     Dosage: FORM: PRE-FILLED SYRINGE
     Route: 065
     Dates: start: 20091101, end: 20100301
  2. PEGASYS [Suspect]
     Route: 058
  3. COPEGUS [Suspect]
     Indication: HEPATITIS C
     Dosage: DIVIDED DOSES, 3 TABLETS BID
     Route: 048
     Dates: start: 20091101, end: 20100301
  4. COPEGUS [Suspect]
     Route: 048
  5. OMEGA 3 [Concomitant]
     Dosage: DRUG REPORTED AS OMEGA III
     Route: 065
  6. VITAMIN B [Concomitant]
     Dosage: DRUG REPORTED AS B VITAMINS
     Route: 065
  7. CELEXA [Concomitant]
     Route: 065
  8. TRAMADOL [Concomitant]
     Indication: ARTHRITIS
     Route: 065
  9. NEXIUM [Concomitant]
     Dosage: FREQUENCY: DAILY
     Route: 065

REACTIONS (24)
  - Dysphonia [Unknown]
  - Haemoptysis [Recovered/Resolved]
  - Suicidal ideation [Recovered/Resolved]
  - Rash pruritic [Unknown]
  - Cough [Unknown]
  - Haematochezia [Unknown]
  - Dry mouth [Unknown]
  - Tongue dry [Unknown]
  - Pyrexia [Unknown]
  - Dizziness [Unknown]
  - Fall [Unknown]
  - Fatigue [Not Recovered/Not Resolved]
  - Decreased appetite [Not Recovered/Not Resolved]
  - Vomiting [Not Recovered/Not Resolved]
  - Oropharyngeal pain [Unknown]
  - Pruritus [Unknown]
  - Urticaria [Unknown]
  - Thirst [Not Recovered/Not Resolved]
  - Weight decreased [Unknown]
  - Pigmentation disorder [Not Recovered/Not Resolved]
  - Abdominal pain [Not Recovered/Not Resolved]
  - Viral load increased [Not Recovered/Not Resolved]
  - Depression [Not Recovered/Not Resolved]
  - Tongue discolouration [Unknown]
